FAERS Safety Report 20631853 (Version 3)
Quarter: 2022Q3

REPORT INFORMATION
  Report Type: Spontaneous
  Country: US (occurrence: US)
  Receive Date: 20220324
  Receipt Date: 20220901
  Transmission Date: 20221027
  Serious: No
  Sender: FDA-Public Use
  Company Number: US-PFIZER INC-202200386402

PATIENT
  Age: 44 Year
  Sex: Female

DRUGS (3)
  1. XELJANZ XR [Suspect]
     Active Substance: TOFACITINIB CITRATE
     Dosage: 11 MG, 2X/WEEK (SUNDAYS AND WEDNESDAYS)
     Dates: start: 20191114
  2. XELJANZ XR [Suspect]
     Active Substance: TOFACITINIB CITRATE
     Dosage: 11 MG, 2X/WEEK (SUNDAYS AND WEDNESDAYS)
     Dates: start: 20220309
  3. XELJANZ XR [Suspect]
     Active Substance: TOFACITINIB CITRATE
     Dosage: 11 MG, ALTERNATE DAY (XELJANZ EVERY OTHER DAY)

REACTIONS (11)
  - Product dose omission issue [Unknown]
  - Memory impairment [Unknown]
  - Urinary tract infection [Unknown]
  - Chest discomfort [Unknown]
  - Dyspepsia [Unknown]
  - Conjunctivitis [Unknown]
  - Muscle tightness [Unknown]
  - Intentional product misuse [Unknown]
  - Fluid retention [Unknown]
  - Bursitis [Unknown]
  - Swelling [Unknown]
